FAERS Safety Report 24757768 (Version 2)
Quarter: 2024Q4

REPORT INFORMATION
  Report Type: Other
  Country: DE (occurrence: DE)
  Receive Date: 20241220
  Receipt Date: 20241231
  Transmission Date: 20250114
  Serious: Yes (Hospitalization)
  Sender: MACLEODS
  Company Number: DE-002147023-NVSC2022DE186129

PATIENT

DRUGS (4)
  1. CELECOXIB [Suspect]
     Active Substance: CELECOXIB
     Indication: Axial spondyloarthritis
     Dosage: 100 MG
     Route: 065
     Dates: start: 20210218
  2. CELECOXIB [Suspect]
     Active Substance: CELECOXIB
     Dosage: 50 MG, QW (1 DAY PER WEEK)
     Route: 065
     Dates: start: 20220115, end: 20221215
  3. COSENTYX [Suspect]
     Active Substance: SECUKINUMAB
     Indication: Axial spondyloarthritis
     Dosage: 150 MG
     Route: 065
     Dates: start: 20201008
  4. COSENTYX [Suspect]
     Active Substance: SECUKINUMAB
     Dosage: 300 MG, QMO (EVERY 4 WEEKS)
     Route: 042
     Dates: start: 20210218

REACTIONS (11)
  - Borderline personality disorder [Unknown]
  - Depression [Recovered/Resolved]
  - Psoriasis [Unknown]
  - Chondropathy [Unknown]
  - Tendon disorder [Unknown]
  - Contusion [Unknown]
  - COVID-19 [Unknown]
  - Libido disorder [Unknown]
  - Sinus bradycardia [Unknown]
  - Back pain [Unknown]
  - Sinusitis [Unknown]

NARRATIVE: CASE EVENT DATE: 20211103
